FAERS Safety Report 6425145-6 (Version None)
Quarter: 2009Q4

REPORT INFORMATION
  Report Type: 
  Country: None (occurrence: None)
  Receive Date: 20091103
  Receipt Date: 20091102
  Transmission Date: 20100525
  Serious: Yes (Life-Threatening, Other)
  Sender: FDA-Public Use
  Company Number: FR-JNJFOC-20091004920

PATIENT
  Sex: Female

DRUGS (14)
  1. REMICADE [Suspect]
     Dosage: THERAPY DURATION FOR ONE YEAR PRIOR TO THE DATE OF THE REPORT
     Route: 042
     Dates: start: 20080201, end: 20090310
  2. REMICADE [Suspect]
     Dosage: THERAPY DURATION FOR ONE YEAR PRIOR TO THE DATE OF THE REPORT
     Route: 042
     Dates: start: 20080201, end: 20090310
  3. REMICADE [Suspect]
     Dosage: THERAPY DURATION FOR ONE YEAR PRIOR TO THE DATE OF THE REPORT
     Route: 042
     Dates: start: 20080201, end: 20090310
  4. REMICADE [Suspect]
     Dosage: THERAPY DURATION FOR ONE YEAR PRIOR TO THE DATE OF THE REPORT
     Route: 042
     Dates: start: 20080201, end: 20090310
  5. REMICADE [Suspect]
     Dosage: THERAPY DURATION FOR ONE YEAR PRIOR TO THE DATE OF THE REPORT
     Route: 042
     Dates: start: 20080201, end: 20090310
  6. REMICADE [Suspect]
     Dosage: THERAPY DURATION FOR ONE YEAR PRIOR TO THE DATE OF THE REPORT
     Route: 042
     Dates: start: 20080201, end: 20090310
  7. REMICADE [Suspect]
     Dosage: THERAPY DURATION FOR ONE YEAR PRIOR TO THE DATE OF THE REPORT
     Route: 042
     Dates: start: 20080201, end: 20090310
  8. REMICADE [Suspect]
     Indication: RHEUMATOID ARTHRITIS
     Dosage: THERAPY DURATION FOR ONE YEAR PRIOR TO THE DATE OF THE REPORT
     Route: 042
     Dates: start: 20080201, end: 20090310
  9. REMICADE [Suspect]
     Indication: ENTEROCOLITIS HAEMORRHAGIC
     Dosage: THERAPY DURATION FOR ONE YEAR PRIOR TO THE DATE OF THE REPORT
     Route: 042
     Dates: start: 20080201, end: 20090310
  10. PREDNISONE [Concomitant]
  11. SALAZOPYRIN [Concomitant]
  12. LEVOTHYROXINE SODIUM [Concomitant]
  13. HYDROCORTISONE [Concomitant]
  14. DIANTALVIC [Concomitant]

REACTIONS (1)
  - BREAST CANCER [None]
